FAERS Safety Report 26113852 (Version 1)
Quarter: 2025Q4

REPORT INFORMATION
  Report Type: Spontaneous
  Country: US (occurrence: US)
  Receive Date: 20251202
  Receipt Date: 20251202
  Transmission Date: 20260119
  Serious: No
  Sender: BAUSCH AND LOMB
  Company Number: US-BAUSCHBL-2025BNL032772

PATIENT
  Sex: Female

DRUGS (1)
  1. LUMIFY PRESERVATIVE FREE EYE DROPS [Suspect]
     Active Substance: BRIMONIDINE TARTRATE
     Indication: Ocular hyperaemia

REACTIONS (1)
  - Eye inflammation [Unknown]

NARRATIVE: CASE EVENT DATE: 20250101
